FAERS Safety Report 24767109 (Version 1)
Quarter: 2024Q4

REPORT INFORMATION
  Report Type: Spontaneous
  Country: MY (occurrence: MY)
  Receive Date: 20241223
  Receipt Date: 20241223
  Transmission Date: 20250115
  Serious: Yes (Death, Other)
  Sender: OTSUKA
  Company Number: MY-OTSUKA-2024_034375

PATIENT
  Age: 86 Year
  Sex: Male

DRUGS (1)
  1. SAMSCA [Suspect]
     Active Substance: TOLVAPTAN
     Indication: Hyponatraemia
     Dosage: 15 MG, QD (PRESCRIBED FOR 1 MONTH)
     Route: 065
     Dates: start: 20241210

REACTIONS (1)
  - Death [Fatal]

NARRATIVE: CASE EVENT DATE: 20241214
